FAERS Safety Report 5821858-5 (Version None)
Quarter: 2008Q3

REPORT INFORMATION
  Report Type: 
  Country: None (occurrence: None)
  Receive Date: 20080722
  Receipt Date: 20080707
  Transmission Date: 20090109
  Serious: Yes (Death)
  Sender: FDA-Public Use
  Company Number: 14703

PATIENT
  Age: 47 Year
  Sex: Female
  Weight: 116.1208 kg

DRUGS (6)
  1. MORPHINE SULFATE [Suspect]
     Indication: BACK PAIN
     Dosage: ORAL
     Route: 048
     Dates: start: 20080208, end: 20080210
  2. IMIPRAMINE [Concomitant]
  3. DESIPRAMINE HCL [Concomitant]
  4. DIAZEPAM [Concomitant]
  5. FLUOXETINE [Concomitant]
  6. METOCLOPRAMIDE [Concomitant]

REACTIONS (9)
  - ARTERIOSCLEROSIS [None]
  - CARDIOMEGALY [None]
  - DRUG INTERACTION [None]
  - DRUG TOXICITY [None]
  - HEPATIC STEATOSIS [None]
  - LEFT VENTRICULAR HYPERTROPHY [None]
  - NEPHROSCLEROSIS [None]
  - PULMONARY CONGESTION [None]
  - PULMONARY OEDEMA [None]
